FAERS Safety Report 23340057 (Version 1)
Quarter: 2023Q4

REPORT INFORMATION
  Report Type: Report from Study
  Country: BR (occurrence: BR)
  Receive Date: 20231227
  Receipt Date: 20231227
  Transmission Date: 20240109
  Serious: Yes (Other)
  Sender: FDA-Public Use
  Company Number: BR-Merck KGaA-7330258

PATIENT
  Age: 40 Year
  Sex: Female

DRUGS (7)
  1. REBIF [Suspect]
     Active Substance: INTERFERON BETA-1A
     Indication: Relapsing-remitting multiple sclerosis
     Route: 058
     Dates: start: 20130524, end: 20130807
  2. REBIF [Suspect]
     Active Substance: INTERFERON BETA-1A
     Route: 058
     Dates: start: 20130911, end: 20190902
  3. INTERFERON BETA-1A [Suspect]
     Active Substance: INTERFERON BETA-1A
     Indication: Relapsing-remitting multiple sclerosis
     Dosage: THERAPY START DATE: 04-SEP-2019  TO 30-AUG-2021
     Route: 058
     Dates: start: 20190904, end: 20210830
  4. INTERFERON BETA-1A [Suspect]
     Active Substance: INTERFERON BETA-1A
     Dosage: THERAPY START DATE 01-SEP-2021?BATCH  2301001, EXPIRY DATE: JUN-2024
     Route: 058
     Dates: start: 20210901
  5. TYLENOL [Concomitant]
     Active Substance: ACETAMINOPHEN
     Indication: Product used for unknown indication
  6. HERBALS [Concomitant]
     Active Substance: HERBALS
     Indication: Product used for unknown indication
  7. AMANTADINE HYDROCHLORIDE [Concomitant]
     Active Substance: AMANTADINE HYDROCHLORIDE
     Indication: Insomnia
     Dosage: ONE TABLET DAILY

REACTIONS (17)
  - Syncope [Recovered/Resolved]
  - Multiple sclerosis [Unknown]
  - Vision blurred [Recovered/Resolved]
  - Dysphonia [Recovered/Resolved]
  - Amnesia [Not Recovered/Not Resolved]
  - Hypokinesia [Not Recovered/Not Resolved]
  - Muscular weakness [Not Recovered/Not Resolved]
  - Weight decreased [Not Recovered/Not Resolved]
  - Anxiety [Not Recovered/Not Resolved]
  - Crying [Unknown]
  - Fear [Unknown]
  - Reading disorder [Not Recovered/Not Resolved]
  - Dysarthria [Not Recovered/Not Resolved]
  - Speech disorder [Not Recovered/Not Resolved]
  - Dyspnoea [Not Recovered/Not Resolved]
  - Communication disorder [Not Recovered/Not Resolved]
  - Hypersensitivity [Recovered/Resolved]

NARRATIVE: CASE EVENT DATE: 20141001
